FAERS Safety Report 18547646 (Version 1)
Quarter: 2020Q4

REPORT INFORMATION
  Report Type: Spontaneous
  Country: US (occurrence: US)
  Receive Date: 20201126
  Receipt Date: 20201126
  Transmission Date: 20210114
  Serious: Yes (Death)
  Sender: FDA-Public Use
  Company Number: US-ROCHE-2721183

PATIENT
  Age: 64 Year
  Sex: Male

DRUGS (5)
  1. LEFLUNOMIDE. [Concomitant]
     Active Substance: LEFLUNOMIDE
  2. IPRATROPIUM [Concomitant]
     Active Substance: IPRATROPIUM
  3. ESBRIET [Suspect]
     Active Substance: PIRFENIDONE
     Indication: PULMONARY FIBROSIS
     Dosage: 267 MG 3 TIMES A DAY, ONGOING: NO
     Route: 048
     Dates: start: 20201015, end: 20201031
  4. PREDNISONE. [Concomitant]
     Active Substance: PREDNISONE
  5. CEFDINIR. [Concomitant]
     Active Substance: CEFDINIR

REACTIONS (1)
  - Death [Fatal]

NARRATIVE: CASE EVENT DATE: 20201031
